FAERS Safety Report 22184933 (Version 2)
Quarter: 2023Q2

REPORT INFORMATION
  Report Type: Report from Study
  Country: JP (occurrence: JP)
  Receive Date: 20230407
  Receipt Date: 20230412
  Transmission Date: 20230721
  Serious: Yes (Other)
  Sender: FDA-Public Use
  Company Number: JP-002147023-NVSJ2022JP001049

PATIENT
  Age: 65 Year
  Sex: Male
  Weight: 53.5 kg

DRUGS (3)
  1. KYMRIAH [Suspect]
     Active Substance: TISAGENLECLEUCEL
     Indication: Diffuse large B-cell lymphoma
     Dosage: 2.65X10^9, FULL DOSE
     Route: 041
     Dates: start: 20201104, end: 20201104
  2. FLUDARABINE [Concomitant]
     Active Substance: FLUDARABINE PHOSPHATE
     Indication: Chemotherapy
     Dosage: 15 MG/M2
     Route: 065
     Dates: start: 20201030
  3. CYCLOPHOSPHAMIDE [Concomitant]
     Active Substance: CYCLOPHOSPHAMIDE
     Indication: Chemotherapy
     Dosage: 187 MG/M2
     Route: 065
     Dates: start: 20201030

REACTIONS (5)
  - Cytokine release syndrome [Recovered/Resolved]
  - Pyrexia [Unknown]
  - Hypogammaglobulinaemia [Not Recovered/Not Resolved]
  - Platelet count decreased [Unknown]
  - Haemoglobin decreased [Unknown]

NARRATIVE: CASE EVENT DATE: 20201108
